FAERS Safety Report 7922192-X (Version None)
Quarter: 2011Q4

REPORT INFORMATION
  Report Type: 
  Country: None (occurrence: None)
  Receive Date: 20111117
  Receipt Date: 20110126
  Transmission Date: 20120403
  Serious: No
  Sender: FDA-Public Use
  Company Number: US-AMGEN-USASP2010003871

PATIENT
  Age: 44 Year
  Sex: Female

DRUGS (7)
  1. SINGULAIR [Concomitant]
  2. MOBIC [Concomitant]
  3. ENBREL [Suspect]
     Indication: RHEUMATOID ARTHRITIS
     Dosage: 50 MG, QWK
     Dates: start: 20090601, end: 20101023
  4. VITAMIN D [Concomitant]
     Dosage: 2000 IU, QD
  5. ARAVA [Concomitant]
  6. PRILOSEC [Concomitant]
  7. FISH OIL [Suspect]

REACTIONS (5)
  - SENSATION OF HEAVINESS [None]
  - PARAESTHESIA [None]
  - VISION BLURRED [None]
  - ABNORMAL SENSATION IN EYE [None]
  - HEADACHE [None]
